FAERS Safety Report 7500382-8 (Version None)
Quarter: 2011Q2

REPORT INFORMATION
  Report Type: 
  Country: None (occurrence: None)
  Receive Date: 20110517
  Receipt Date: 20110504
  Transmission Date: 20111010
  Serious: Yes (Other)
  Sender: FDA-Public Use
  Company Number: 1000020818

PATIENT
  Age: 22 Year
  Sex: Female

DRUGS (2)
  1. COX-2 INHIBITOR (COX-2) (-COX-2) [Concomitant]
  2. LEXAPRO (ESCITALOPRAM OXALATE) (TABLETS) [Suspect]

REACTIONS (2)
  - VAGINAL HAEMORRHAGE [None]
  - INCREASED TENDENCY TO BRUISE [None]
